FAERS Safety Report 6295736-4 (Version None)
Quarter: 2009Q3

REPORT INFORMATION
  Report Type: 
  Country: None (occurrence: None)
  Receive Date: 20090803
  Receipt Date: 20090803
  Transmission Date: 20100115
  Serious: Yes (Other)
  Sender: FDA-Public Use
  Company Number: None

PATIENT
  Age: 69 Year
  Sex: Female
  Weight: 39.0093 kg

DRUGS (1)
  1. ACTONEL [Suspect]
     Indication: OSTEOPOROSIS
     Dosage: 1 TABLET EACH MONTHLY ? MONTH-EARLY AM JAN.-JULY. 2009 ? MONTHLY FROM JAN.-JULY, 2009
     Dates: start: 20090101, end: 20090701

REACTIONS (6)
  - CHILLS [None]
  - DIARRHOEA [None]
  - EATING DISORDER [None]
  - PYREXIA [None]
  - VOMITING [None]
  - WEIGHT DECREASED [None]
